FAERS Safety Report 11080630 (Version 1)
Quarter: 2015Q2

REPORT INFORMATION
  Report Type: Spontaneous
  Country: US (occurrence: None)
  Receive Date: 20150430
  Receipt Date: 20150430
  Transmission Date: 20150821
  Serious: Yes (Death)
  Sender: FDA-Public Use
  Company Number: None

PATIENT
  Age: 50 Year
  Sex: Female
  Weight: 43.7 kg

DRUGS (2)
  1. CAMPTOSAR [Concomitant]
     Active Substance: IRINOTECAN HYDROCHLORIDE
     Dates: end: 20150406
  2. TAXOTERE [Suspect]
     Active Substance: DOCETAXEL
     Dates: end: 20150406

REACTIONS (2)
  - Dehydration [None]
  - Intestinal obstruction [None]

NARRATIVE: CASE EVENT DATE: 20150428
